FAERS Safety Report 14196946 (Version 4)
Quarter: 2018Q1

REPORT INFORMATION
  Report Type: Spontaneous
  Country: CA (occurrence: CA)
  Receive Date: 20171116
  Receipt Date: 20180220
  Transmission Date: 20180508
  Serious: Yes (Hospitalization, Other)
  Sender: FDA-Public Use
  Company Number: CA-CELLTRION INC.-2016CA010717

PATIENT

DRUGS (11)
  1. INFLECTRA [Suspect]
     Active Substance: INFLIXIMAB-DYYB
     Indication: PSORIATIC ARTHROPATHY
     Dosage: 443 MG, Q 0, 2, 6 WEEKS,THEN EVERY 8 WEEKS
     Route: 042
     Dates: start: 20160211
  2. PLAQUENIL                          /00072602/ [Concomitant]
     Active Substance: HYDROXYCHLOROQUINE DIPHOSPHATE
     Dosage: 200 MG, 2 TABLETS DAILY
     Route: 048
     Dates: start: 20140101
  3. INFLECTRA [Suspect]
     Active Substance: INFLIXIMAB-DYYB
     Dosage: 600 MG, Q 0, 2, 6 WEEKS,THEN EVERY 8 WEEKS
     Route: 042
  4. INFLECTRA [Suspect]
     Active Substance: INFLIXIMAB-DYYB
     Dosage: 443 MG, CYCLIC (EVERY 8 WEEKS)
     Route: 042
     Dates: start: 20171026, end: 20171026
  5. METHOTREXATE. [Concomitant]
     Active Substance: METHOTREXATE
     Dosage: 20 MG, WEEKLY
     Route: 048
     Dates: start: 20130101
  6. TRAMADOL. [Concomitant]
     Active Substance: TRAMADOL
     Dosage: 325 MG, 4 TIMES DAILY, FREQ: AS NEEDED
     Route: 048
  7. VIMOVO [Concomitant]
     Active Substance: ESOMEPRAZOLE MAGNESIUM\NAPROXEN
     Dosage: 500/20 MG
     Route: 048
     Dates: start: 20140301
  8. FOLIC ACID. [Concomitant]
     Active Substance: FOLIC ACID
     Dosage: 6 DAYS/WEEK
     Route: 048
  9. EFFEXOR [Concomitant]
     Active Substance: VENLAFAXINE HYDROCHLORIDE
     Dosage: 37.5 MG, DAILY
     Route: 048
  10. PREDNISONE. [Concomitant]
     Active Substance: PREDNISONE
     Indication: PAIN
     Dosage: VARIABLE DOSES
     Route: 065
  11. INFLECTRA [Suspect]
     Active Substance: INFLIXIMAB-DYYB
     Dosage: 455 MG, THEN EVERY 8 WEEKS
     Route: 042
     Dates: start: 2017

REACTIONS (16)
  - Drug ineffective [Unknown]
  - Vasculitis [Not Recovered/Not Resolved]
  - Oedema peripheral [Unknown]
  - Incorrect dosage administered [Unknown]
  - Pain in extremity [Unknown]
  - Back pain [Recovering/Resolving]
  - Urinary tract infection [Recovered/Resolved]
  - Epistaxis [Unknown]
  - Nasal congestion [Unknown]
  - Angioedema [Not Recovered/Not Resolved]
  - Dry skin [Unknown]
  - Pain [Unknown]
  - Blood pressure increased [Unknown]
  - Drug hypersensitivity [Not Recovered/Not Resolved]
  - Erythema [Unknown]
  - Oral herpes [Recovered/Resolved]

NARRATIVE: CASE EVENT DATE: 2016
